FAERS Safety Report 20866842 (Version 1)
Quarter: 2022Q2

REPORT INFORMATION
  Report Type: Spontaneous
  Country: US (occurrence: None)
  Receive Date: 20220524
  Receipt Date: 20220524
  Transmission Date: 20220720
  Serious: No
  Sender: FDA-Public Use
  Company Number: 2022A182952

PATIENT
  Sex: Female

DRUGS (1)
  1. XIGDUO XR [Suspect]
     Active Substance: DAPAGLIFLOZIN PROPANEDIOL\METFORMIN HYDROCHLORIDE
     Indication: Glycosylated haemoglobin increased
     Dosage: 5MG/1000MG ONCE DAILY
     Route: 048

REACTIONS (3)
  - Fungal infection [Unknown]
  - Glycosylated haemoglobin abnormal [Unknown]
  - Product use in unapproved indication [Unknown]
